FAERS Safety Report 25658669 (Version 1)
Quarter: 2025Q3

REPORT INFORMATION
  Report Type: Spontaneous
  Country: US (occurrence: US)
  Receive Date: 20250808
  Receipt Date: 20250808
  Transmission Date: 20251021
  Serious: Yes (Hospitalization, Other)
  Sender: Unknown Manufacturer
  Company Number: US-STRIDES ARCOLAB LIMITED-2025OS000346

PATIENT
  Age: 47 Year
  Sex: Female

DRUGS (2)
  1. ETOPOSIDE [Suspect]
     Active Substance: ETOPOSIDE
     Indication: Haemophagocytic lymphohistiocytosis
     Route: 065
  2. DEXAMETHASONE [Suspect]
     Active Substance: DEXAMETHASONE
     Indication: Haemophagocytic lymphohistiocytosis
     Route: 065

REACTIONS (7)
  - Condition aggravated [Unknown]
  - Gastrointestinal haemorrhage [Unknown]
  - Multiple organ dysfunction syndrome [Unknown]
  - Cerebral haemorrhage [Unknown]
  - Shock [Unknown]
  - Tachyarrhythmia [Unknown]
  - Off label use [Unknown]
